FAERS Safety Report 21897046 (Version 2)
Quarter: 2023Q1

REPORT INFORMATION
  Report Type: Spontaneous
  Country: PH (occurrence: PH)
  Receive Date: 20230123
  Receipt Date: 20230202
  Transmission Date: 20230418
  Serious: Yes (Other)
  Sender: FDA-Public Use
  Company Number: PH-BAYER-2023P003480

PATIENT
  Age: 78 Year
  Sex: Female
  Weight: 60 kg

DRUGS (4)
  1. XARELTO [Suspect]
     Active Substance: RIVAROXABAN
     Indication: Anticoagulant therapy
     Dosage: 15 MG, QD
     Route: 048
     Dates: start: 20221223, end: 20221223
  2. KENZAR [Concomitant]
     Indication: Hypertension
     Dosage: 50 MG, QD
     Route: 048
     Dates: start: 202212
  3. TMZ MR [Concomitant]
     Indication: Angina pectoris
     Dosage: 35 MG, BID
     Route: 048
     Dates: start: 202212
  4. LANOXIN [Concomitant]
     Active Substance: DIGOXIN
     Indication: Cardiac disorder
     Dosage: 250 UG
     Route: 048
     Dates: start: 202212

REACTIONS (1)
  - Ophthalmic vascular thrombosis [Unknown]

NARRATIVE: CASE EVENT DATE: 20221223
